FAERS Safety Report 9433537 (Version 1)
Quarter: 2013Q3

REPORT INFORMATION
  Report Type: Spontaneous
  Country: FR (occurrence: FR)
  Receive Date: 20130731
  Receipt Date: 20130731
  Transmission Date: 20140515
  Serious: Yes (Hospitalization, Other)
  Sender: FDA-Public Use
  Company Number: FR-JNJFOC-20130715320

PATIENT
  Age: 67 Year
  Sex: Male

DRUGS (6)
  1. REMICADE [Suspect]
     Indication: RHEUMATOID ARTHRITIS
     Dosage: LAST INFLIXIMAB INFUSION
     Route: 042
     Dates: start: 20130514
  2. REMICADE [Suspect]
     Indication: RHEUMATOID ARTHRITIS
     Route: 042
     Dates: start: 200009
  3. METHOTREXATE [Suspect]
     Indication: RHEUMATOID ARTHRITIS
     Route: 048
     Dates: start: 1998, end: 20130514
  4. AUGMENTIN [Suspect]
     Indication: BRONCHITIS
     Route: 048
     Dates: start: 20130502, end: 20130512
  5. AMBROXOL [Suspect]
     Indication: BRONCHITIS
     Route: 048
     Dates: start: 20130502, end: 20130512
  6. OROKEN [Suspect]
     Indication: URINARY TRACT PAIN
     Route: 048
     Dates: start: 20130518, end: 20130519

REACTIONS (6)
  - Oedematous pancreatitis [Recovering/Resolving]
  - Atrial fibrillation [Recovering/Resolving]
  - Vascular pseudoaneurysm [Recovering/Resolving]
  - Peritoneal haemorrhage [Recovering/Resolving]
  - Bronchitis [Recovering/Resolving]
  - Dysuria [Recovering/Resolving]
